FAERS Safety Report 16728923 (Version 2)
Quarter: 2024Q3

REPORT INFORMATION
  Report Type: Spontaneous
  Country: AU (occurrence: AU)
  Receive Date: 20190822
  Receipt Date: 20240812
  Transmission Date: 20241017
  Serious: No
  Sender: SANOFI AVENTIS
  Company Number: AU-SA-2019SA230317

PATIENT
  Age: 62 Year
  Sex: Male

DRUGS (2)
  1. TAMSULOSIN HYDROCHLORIDE [Suspect]
     Active Substance: TAMSULOSIN HYDROCHLORIDE
     Indication: Urine flow decreased
     Dosage: 1 DF, QD
  2. TAMSULOSIN HYDROCHLORIDE [Suspect]
     Active Substance: TAMSULOSIN HYDROCHLORIDE
     Indication: Prostatomegaly

REACTIONS (7)
  - Neck pain [Unknown]
  - Nervous system disorder [Unknown]
  - Insomnia [Unknown]
  - Impaired driving ability [Unknown]
  - Headache [Unknown]
  - Constipation [Recovered/Resolved]
  - Product dose omission issue [Unknown]
